FAERS Safety Report 21582090 (Version 1)
Quarter: 2022Q4

REPORT INFORMATION
  Report Type: Report from Study
  Country: GB (occurrence: GB)
  Receive Date: 20221111
  Receipt Date: 20221111
  Transmission Date: 20230112
  Serious: Yes (Other)
  Sender: FDA-Public Use
  Company Number: GB-BRISTOL-MYERS SQUIBB COMPANY-2022-124437

PATIENT

DRUGS (34)
  1. DEXAMETHASONE [Suspect]
     Active Substance: DEXAMETHASONE
     Indication: Product used for unknown indication
     Dosage: 10 MG, 1 DOSE WEEKLY
     Route: 048
     Dates: start: 20201017, end: 20201113
  2. DEXAMETHASONE [Suspect]
     Active Substance: DEXAMETHASONE
     Dosage: 10 MG, 1 DOSE WEEKLY
     Route: 048
     Dates: start: 20200919, end: 20201016
  3. DEXAMETHASONE [Suspect]
     Active Substance: DEXAMETHASONE
     Dosage: 20 MG, 1 DOSE WEEKLY
     Route: 048
     Dates: start: 20200822, end: 20200918
  4. REVLIMID [Suspect]
     Active Substance: LENALIDOMIDE
     Indication: Plasma cell myeloma
     Dosage: 15 MG
     Route: 048
     Dates: start: 20200919, end: 20201009
  5. REVLIMID [Suspect]
     Active Substance: LENALIDOMIDE
     Dosage: 15 MG
     Route: 048
     Dates: start: 20220107, end: 20220127
  6. REVLIMID [Suspect]
     Active Substance: LENALIDOMIDE
     Dosage: 10 MG
     Route: 048
     Dates: start: 20210820, end: 20210909
  7. REVLIMID [Suspect]
     Active Substance: LENALIDOMIDE
     Dosage: UNK MG
     Route: 065
     Dates: start: 20220225, end: 20220303
  8. REVLIMID [Suspect]
     Active Substance: LENALIDOMIDE
     Dosage: UNK MG
     Route: 065
     Dates: start: 20211231, end: 20220106
  9. REVLIMID [Suspect]
     Active Substance: LENALIDOMIDE
     Dosage: UNK MG
     Route: 065
     Dates: start: 20220422, end: 20220428
  10. REVLIMID [Suspect]
     Active Substance: LENALIDOMIDE
     Dosage: 10 MG
     Route: 048
     Dates: start: 20211112, end: 20211202
  11. REVLIMID [Suspect]
     Active Substance: LENALIDOMIDE
     Dosage: 15 MG
     Route: 048
     Dates: start: 20201017, end: 20201106
  12. REVLIMID [Suspect]
     Active Substance: LENALIDOMIDE
     Dosage: UNK MG
     Route: 065
     Dates: start: 20201010, end: 20201016
  13. REVLIMID [Suspect]
     Active Substance: LENALIDOMIDE
     Dosage: UNK MG
     Route: 065
     Dates: start: 20211008, end: 20211014
  14. REVLIMID [Suspect]
     Active Substance: LENALIDOMIDE
     Dosage: UNK MG
     Route: 065
     Dates: start: 20220325, end: 20220331
  15. REVLIMID [Suspect]
     Active Substance: LENALIDOMIDE
     Dosage: 10 MG
     Route: 048
     Dates: start: 20210917, end: 20211007
  16. REVLIMID [Suspect]
     Active Substance: LENALIDOMIDE
     Dosage: UNK MG
     Route: 065
     Dates: start: 20210910, end: 20210916
  17. REVLIMID [Suspect]
     Active Substance: LENALIDOMIDE
     Dosage: UNK MG
     Route: 065
     Dates: start: 20220817, end: 20220823
  18. REVLIMID [Suspect]
     Active Substance: LENALIDOMIDE
     Dosage: UNK MG
     Route: 065
     Dates: start: 20200912, end: 20200918
  19. REVLIMID [Suspect]
     Active Substance: LENALIDOMIDE
     Dosage: 15 MG
     Route: 048
     Dates: start: 20220401, end: 20220421
  20. REVLIMID [Suspect]
     Active Substance: LENALIDOMIDE
     Dosage: 15 MG
     Route: 048
     Dates: start: 20200822, end: 20200911
  21. REVLIMID [Suspect]
     Active Substance: LENALIDOMIDE
     Dosage: UNK MG
     Route: 065
     Dates: start: 20220520, end: 20220526
  22. REVLIMID [Suspect]
     Active Substance: LENALIDOMIDE
     Dosage: 15 MG
     Route: 048
     Dates: start: 20220304, end: 20220324
  23. REVLIMID [Suspect]
     Active Substance: LENALIDOMIDE
     Dosage: 15 MG
     Route: 048
     Dates: start: 20220429, end: 20220519
  24. REVLIMID [Suspect]
     Active Substance: LENALIDOMIDE
     Dosage: UNK MG
     Route: 065
     Dates: start: 20201107, end: 20201113
  25. REVLIMID [Suspect]
     Active Substance: LENALIDOMIDE
     Dosage: 15 MG
     Route: 048
     Dates: start: 20220204, end: 20220224
  26. REVLIMID [Suspect]
     Active Substance: LENALIDOMIDE
     Dosage: UNK MG
     Route: 065
     Dates: start: 20211105, end: 20211111
  27. REVLIMID [Suspect]
     Active Substance: LENALIDOMIDE
     Dosage: 10 MG
     Route: 048
     Dates: start: 20211015, end: 20211104
  28. REVLIMID [Suspect]
     Active Substance: LENALIDOMIDE
     Dosage: 15 MG
     Route: 048
     Dates: start: 20220609, end: 20220627
  29. REVLIMID [Suspect]
     Active Substance: LENALIDOMIDE
     Dosage: UNK MG
     Route: 065
     Dates: start: 20211203, end: 20211209
  30. REVLIMID [Suspect]
     Active Substance: LENALIDOMIDE
     Dosage: 10 MG
     Route: 048
     Dates: start: 20220727, end: 20220816
  31. REVLIMID [Suspect]
     Active Substance: LENALIDOMIDE
     Dosage: 15 MG
     Route: 048
     Dates: start: 20211210, end: 20211230
  32. REVLIMID [Suspect]
     Active Substance: LENALIDOMIDE
     Dosage: UNK MG
     Route: 065
     Dates: start: 20220128, end: 20220203
  33. REVLIMID [Suspect]
     Active Substance: LENALIDOMIDE
     Dosage: UNK MG
     Route: 065
     Dates: start: 20220527, end: 20220608
  34. REVLIMID [Suspect]
     Active Substance: LENALIDOMIDE
     Dosage: UNK MG
     Route: 065
     Dates: start: 20220628, end: 20220726

REACTIONS (2)
  - Thrombocytopenia [Not Recovered/Not Resolved]
  - Anaemia [Recovering/Resolving]

NARRATIVE: CASE EVENT DATE: 20220525
